FAERS Safety Report 5018860-2 (Version None)
Quarter: 2006Q2

REPORT INFORMATION
  Report Type: 
  Country: None (occurrence: None)
  Receive Date: 20060531
  Receipt Date: 20060523
  Transmission Date: 20061013
  Serious: Yes (Death, Other)
  Sender: FDA-Public Use
  Company Number: USA-2006-0023851

PATIENT
  Age: 43 Year
  Sex: Male
  Weight: 67.6 kg

DRUGS (6)
  1. OXYCODONE HCL [Suspect]
     Indication: DRUG USE FOR UNKNOWN INDICATION
     Dosage: 80 MG Q12H
  2. SOMA [Concomitant]
  3. XANAX [Concomitant]
  4. TRAZODONE HCL [Concomitant]
  5. PAXIL [Concomitant]
  6. VICODIN [Concomitant]

REACTIONS (12)
  - ABDOMINAL INJURY [None]
  - ABNORMAL BEHAVIOUR [None]
  - CARDIO-RESPIRATORY ARREST [None]
  - CHEST INJURY [None]
  - COMPLETED SUICIDE [None]
  - HEART INJURY [None]
  - INTENTIONAL SELF-INJURY [None]
  - LIMB INJURY [None]
  - LOSS OF CONSCIOUSNESS [None]
  - OVERDOSE [None]
  - PERICARDIAL HAEMORRHAGE [None]
  - REFUSAL OF TREATMENT BY PATIENT [None]
